FAERS Safety Report 6919914-3 (Version None)
Quarter: 2010Q3

REPORT INFORMATION
  Report Type: 
  Country: None (occurrence: None)
  Receive Date: 20100811
  Receipt Date: 20100805
  Transmission Date: 20110219
  Serious: Yes (Other)
  Sender: FDA-Public Use
  Company Number: TW-BAXTER-2010BH020946

PATIENT
  Age: 66 Year
  Sex: Female

DRUGS (5)
  1. EXTRANEAL [Suspect]
     Indication: PERITONEAL DIALYSIS
     Route: 033
  2. ROSIGLITAZONE [Concomitant]
     Indication: HYPERGLYCAEMIA
     Route: 065
  3. GLIMEPIRIDE [Concomitant]
     Indication: HYPERGLYCAEMIA
     Route: 065
  4. INSULIN [Concomitant]
     Indication: HYPERGLYCAEMIA
     Route: 065
  5. DIANEAL [Concomitant]
     Indication: PERITONEAL DIALYSIS
     Route: 033

REACTIONS (2)
  - DEVICE INTERACTION [None]
  - HYPOGLYCAEMIA [None]
